FAERS Safety Report 18678082 (Version 1)
Quarter: 2020Q4

REPORT INFORMATION
  Report Type: Report from Study
  Country: US (occurrence: US)
  Receive Date: 20201229
  Receipt Date: 20201229
  Transmission Date: 20210114
  Serious: Yes (Other)
  Sender: FDA-Public Use
  Company Number: US-CLOVIS ONCOLOGY-CLO-2020-000085

PATIENT
  Sex: Female

DRUGS (3)
  1. RUBRACA [Suspect]
     Active Substance: RUCAPARIB CAMSYLATE
     Indication: OVARIAN CANCER
     Dosage: 600 MG, BID
     Route: 048
     Dates: start: 20191231, end: 20200107
  2. RUBRACA [Suspect]
     Active Substance: RUCAPARIB CAMSYLATE
     Dosage: 300 MG, BID
     Route: 048
     Dates: start: 20200107, end: 20200424
  3. RUBRACA [Suspect]
     Active Substance: RUCAPARIB CAMSYLATE
     Dosage: 300 MG, BID
     Route: 048
     Dates: start: 202001, end: 20200424

REACTIONS (11)
  - Arthralgia [Recovered/Resolved]
  - Abdominal pain [Unknown]
  - Ovarian cancer recurrent [Unknown]
  - Product dose omission issue [Unknown]
  - Influenza like illness [Recovering/Resolving]
  - Tumour marker increased [Unknown]
  - Headache [Unknown]
  - Nausea [Recovering/Resolving]
  - Migraine [Recovering/Resolving]
  - Feeling abnormal [Recovering/Resolving]
  - Bone pain [Recovered/Resolved]
